FAERS Safety Report 6594451-7 (Version None)
Quarter: 2010Q1

REPORT INFORMATION
  Report Type: 
  Country: None (occurrence: None)
  Receive Date: 20100218
  Receipt Date: 20100218
  Transmission Date: 20100710
  Serious: Yes (Hospitalization)
  Sender: FDA-Public Use
  Company Number: None

PATIENT
  Age: 71 Year
  Sex: Male
  Weight: 135 kg

DRUGS (3)
  1. WARFARIN SODIUM [Suspect]
     Indication: ATRIAL FIBRILLATION
     Dosage: 5 MG EVERY DAY PO
     Route: 048
     Dates: start: 20091119, end: 20091203
  2. WARFARIN SODIUM [Suspect]
     Indication: CARDIOVASCULAR DISORDER
     Dosage: 5 MG EVERY DAY PO
     Route: 048
     Dates: start: 20091119, end: 20091203
  3. WARFARIN SODIUM [Suspect]
     Indication: SURGERY
     Dosage: 5 MG EVERY DAY PO
     Route: 048
     Dates: start: 20091119, end: 20091203

REACTIONS (1)
  - HAEMORRHAGE [None]
